FAERS Safety Report 5530376-3 (Version None)
Quarter: 2007Q4

REPORT INFORMATION
  Report Type: 
  Country: None (occurrence: None)
  Receive Date: 20071127
  Receipt Date: 20071120
  Transmission Date: 20080405
  Serious: Yes (Death, Hospitalization)
  Sender: FDA-Public Use
  Company Number: 062-C5013-07070359

PATIENT
  Age: 67 Year
  Sex: Female
  Weight: 60 kg

DRUGS (3)
  1. CC-5013 (LENALIDOMIDE) (CAPSULES) [Suspect]
     Indication: MULTIPLE MYELOMA
     Dosage: 25 MG, X 21 DAYS, ORAL
     Route: 048
     Dates: start: 20070329, end: 20070708
  2. DEXAMETHASONE TAB [Suspect]
     Indication: MULTIPLE MYELOMA
     Dosage: 40 MG, DAY 1-4, 9-12, 17-20, ORAL
     Route: 048
     Dates: start: 20070329, end: 20070707
  3. DIFLUCAN [Concomitant]

REACTIONS (22)
  - ABDOMINAL PAIN [None]
  - CITROBACTER INFECTION [None]
  - DRUG TOXICITY [None]
  - ENTEROBACTER INFECTION [None]
  - EPIDERMOLYSIS BULLOSA [None]
  - ERYSIPELAS [None]
  - HAEMATOMA [None]
  - HAEMORRHAGE [None]
  - LEUKOPENIA [None]
  - MULTI-ORGAN FAILURE [None]
  - NECROSIS [None]
  - NEUTROPENIC INFECTION [None]
  - OEDEMA PERIPHERAL [None]
  - PAIN [None]
  - PNEUMONIA [None]
  - RESPIRATORY TRACT INFECTION [None]
  - SEPSIS [None]
  - SKIN DISCOLOURATION [None]
  - SKIN LESION [None]
  - SOMNOLENCE [None]
  - THROMBOCYTOPENIA [None]
  - VASCULITIS [None]
